FAERS Safety Report 23789927 (Version 2)
Quarter: 2024Q2

REPORT INFORMATION
  Report Type: Spontaneous
  Country: US (occurrence: US)
  Receive Date: 20240426
  Receipt Date: 20240610
  Transmission Date: 20240716
  Serious: Yes (Other)
  Sender: FDA-Public Use
  Company Number: US-AstraZeneca-CH-00611022A

PATIENT
  Age: 34 Year
  Sex: Female

DRUGS (1)
  1. SOLIRIS [Suspect]
     Active Substance: ECULIZUMAB
     Indication: Neuromyelitis optica spectrum disorder
     Route: 042
     Dates: start: 202310, end: 202403

REACTIONS (3)
  - Neuromyelitis optica spectrum disorder [Recovering/Resolving]
  - Condition aggravated [Recovering/Resolving]
  - Insurance issue [Unknown]
